FAERS Safety Report 8423396-2 (Version None)
Quarter: 2012Q2

REPORT INFORMATION
  Report Type: 
  Country: None (occurrence: None)
  Receive Date: 20120608
  Receipt Date: 20120601
  Transmission Date: 20120825
  Serious: Yes (Other)
  Sender: FDA-Public Use
  Company Number: GB-TEVA-340879ISR

PATIENT
  Age: 84 Year
  Sex: Male

DRUGS (8)
  1. ALLOPURINOL [Concomitant]
     Indication: GOUT
     Dosage: ONGOING
     Route: 048
     Dates: start: 20100101
  2. KALMS SLEEP [Suspect]
     Dosage: KALMS NIGHT TIME HERBAL. AT NIGHT.
     Dates: start: 20120501, end: 20120505
  3. DIGOXIN [Concomitant]
     Indication: CARDIAC FAILURE
     Dosage: ONGOING
     Route: 048
     Dates: start: 20080101
  4. OMEPRAZOLE [Concomitant]
     Indication: DYSPEPSIA
     Dosage: ONGOING
     Route: 048
     Dates: start: 20080101
  5. SIMVASTATIN [Concomitant]
     Indication: HYPERCHOLESTEROLAEMIA
     Dosage: ONGOING
     Route: 048
     Dates: start: 20080101
  6. WARFARIN SODIUM [Suspect]
     Indication: ATRIAL FIBRILLATION
     Dosage: ONGOING
     Route: 048
  7. ZOPICLONE [Concomitant]
     Indication: SLEEP DISORDER
     Dosage: ONGOING.
     Route: 048
     Dates: start: 20080101
  8. CANDESARTAN CILEXETIL [Concomitant]
     Indication: CARDIAC FAILURE
     Dosage: ONGOING
     Route: 048
     Dates: start: 20080101

REACTIONS (2)
  - INTERNATIONAL NORMALISED RATIO DECREASED [None]
  - ENZYME INDUCTION [None]
